FAERS Safety Report 9367472 (Version 2)
Quarter: 2016Q3

REPORT INFORMATION
  Report Type: Spontaneous
  Country: US (occurrence: US)
  Receive Date: 20130625
  Receipt Date: 20160720
  Transmission Date: 20161109
  Serious: No
  Sender: FDA-Public Use
  Company Number: US-ASTELLAS-2012US006229

PATIENT
  Age: 77 Year
  Sex: Male

DRUGS (2)
  1. VESICARE [Suspect]
     Active Substance: SOLIFENACIN SUCCINATE
     Indication: PRODUCT USED FOR UNKNOWN INDICATION
     Route: 048
  2. VESICARE [Suspect]
     Active Substance: SOLIFENACIN SUCCINATE
     Route: 065

REACTIONS (2)
  - Drug effect incomplete [Unknown]
  - Wrong technique in product usage process [Unknown]
